FAERS Safety Report 24667826 (Version 2)
Quarter: 2025Q2

REPORT INFORMATION
  Report Type: Report from Study
  Country: IL (occurrence: IL)
  Receive Date: 20241127
  Receipt Date: 20250528
  Transmission Date: 20250717
  Serious: Yes (Hospitalization, Other)
  Sender: ABBVIE
  Company Number: IL-ABBVIE-6013073

PATIENT
  Age: 34 Year
  Sex: Female

DRUGS (2)
  1. SKYRIZI [Suspect]
     Active Substance: RISANKIZUMAB-RZAA
     Indication: Crohn^s disease
     Route: 058
     Dates: end: 202502
  2. SKYRIZI [Suspect]
     Active Substance: RISANKIZUMAB-RZAA
     Indication: Crohn^s disease
     Dosage: STRENGTH 600 MG? END DATE 2024
     Route: 042
     Dates: start: 20240921

REACTIONS (4)
  - Abscess intestinal [Unknown]
  - Intestinal obstruction [Recovered/Resolved]
  - Abdominal pain [Recovering/Resolving]
  - Pyrexia [Recovered/Resolved]

NARRATIVE: CASE EVENT DATE: 20240101
